FAERS Safety Report 4623743-3 (Version None)
Quarter: 2005Q1

REPORT INFORMATION
  Report Type: 
  Country: None (occurrence: None)
  Receive Date: 20050331
  Receipt Date: 20050330
  Transmission Date: 20050727
  Serious: Yes (Death, Other)
  Sender: FDA-Public Use
  Company Number: US-BRISTOL-MYERS SQUIBB COMPANY-12915401

PATIENT
  Age: 87 Year
  Sex: Female

DRUGS (1)
  1. SERZONE [Suspect]
     Route: 048
     Dates: start: 19981101, end: 20040501

REACTIONS (1)
  - HEPATIC NEOPLASM MALIGNANT [None]
